FAERS Safety Report 9419671 (Version 1)
Quarter: 2013Q3

REPORT INFORMATION
  Report Type: Report from Study
  Country: JP (occurrence: JP)
  Receive Date: 20130725
  Receipt Date: 20130725
  Transmission Date: 20140515
  Serious: Yes (Hospitalization)
  Sender: FDA-Public Use
  Company Number: JP-B.I. PHARMACEUTICALS,INC./RIDGEFIELD-2013-BI-21964GD

PATIENT
  Sex: 0

DRUGS (5)
  1. MOBIC [Suspect]
     Indication: PAIN
     Dosage: 15 MG
     Route: 048
     Dates: start: 20090411, end: 20101108
  2. PARIET [Concomitant]
     Dosage: 20 MG
     Route: 048
     Dates: start: 20090409
  3. PROMAC [Concomitant]
     Indication: ZINC DEFICIENCY
     Route: 048
     Dates: start: 20090409
  4. LASIX [Concomitant]
     Indication: POLYURIA
     Route: 048
  5. MACACY-A [Concomitant]
     Route: 048
     Dates: start: 20090409

REACTIONS (2)
  - Upper gastrointestinal haemorrhage [Not Recovered/Not Resolved]
  - Gastric antral vascular ectasia [Not Recovered/Not Resolved]
